FAERS Safety Report 4782339-3 (Version None)
Quarter: 2005Q3

REPORT INFORMATION
  Report Type: 
  Country: None (occurrence: None)
  Receive Date: 20050914
  Receipt Date: 20050506
  Transmission Date: 20060218
  Serious: Yes (Other)
  Sender: FDA-Public Use
  Company Number: 163-20785-05050159

PATIENT
  Age: 65 Year
  Sex: Female

DRUGS (1)
  1. THALOMID [Suspect]
     Indication: MYELODYSPLASTIC SYNDROME
     Dosage: 150-200MG, QD, ORAL
     Route: 048
     Dates: start: 20021112, end: 20050430

REACTIONS (1)
  - PULMONARY EMBOLISM [None]
